FAERS Safety Report 12502732 (Version 1)
Quarter: 2016Q2

REPORT INFORMATION
  Report Type: Spontaneous
  Country: FR (occurrence: FR)
  Receive Date: 20160628
  Receipt Date: 20160628
  Transmission Date: 20160815
  Serious: Yes (Hospitalization, Other)
  Sender: FDA-Public Use
  Company Number: FR-BAXTER-2016BAX032149

PATIENT
  Age: 53 Year
  Sex: Female

DRUGS (11)
  1. ZARZIO [Concomitant]
     Active Substance: FILGRASTIM
     Dosage: 30 MU/0.5 MG; POST CHEMOTHERAPY
     Route: 058
  2. TRAMADOL HYDROCHLORIDE. [Concomitant]
     Active Substance: TRAMADOL HYDROCHLORIDE
     Indication: PRODUCT USED FOR UNKNOWN INDICATION
     Dosage: ON DEMAND
     Route: 048
  3. IMOVANE [Concomitant]
     Active Substance: ZOPICLONE
     Indication: PRODUCT USED FOR UNKNOWN INDICATION
     Route: 048
  4. ZARZIO [Concomitant]
     Active Substance: FILGRASTIM
     Dosage: 30 MU/0.5 MG; DAY 11
     Route: 058
  5. ENDOXAN 50 MG, COMPRIM? ENROB? [Suspect]
     Active Substance: CYCLOPHOSPHAMIDE
     Indication: METASTASES TO BONE
     Route: 048
     Dates: start: 20160428, end: 20160515
  6. ENDOXAN 50 MG, COMPRIM? ENROB? [Suspect]
     Active Substance: CYCLOPHOSPHAMIDE
     Indication: BREAST CANCER METASTATIC
     Route: 048
     Dates: start: 20160318, end: 20160404
  7. CISPLATINE MYLAN [Suspect]
     Active Substance: CISPLATIN
     Indication: BREAST CANCER METASTATIC
     Dosage: TOTAL DOSE, SIX COURSES
     Route: 065
     Dates: start: 20160318
  8. CISPLATINE MYLAN [Suspect]
     Active Substance: CISPLATIN
     Indication: METASTASES TO BONE
     Dosage: SEVENTH COURSE
     Route: 065
     Dates: start: 20160512, end: 20160512
  9. ZARZIO [Concomitant]
     Active Substance: FILGRASTIM
     Indication: PRODUCT USED FOR UNKNOWN INDICATION
     Dosage: 30 MU/0.5 MG; DAY 3
     Route: 058
  10. ZARZIO [Concomitant]
     Active Substance: FILGRASTIM
     Dosage: 30 MU/0.5 MG; DAY 5
     Route: 058
  11. PARACETAMOL [Concomitant]
     Active Substance: ACETAMINOPHEN
     Indication: PRODUCT USED FOR UNKNOWN INDICATION
     Route: 048

REACTIONS (6)
  - Gastrointestinal hypomotility [Unknown]
  - Neutropenia [Recovered/Resolved]
  - Hepatomegaly [Unknown]
  - Ascites [Unknown]
  - Splenomegaly [Unknown]
  - Enteritis [Recovered/Resolved]

NARRATIVE: CASE EVENT DATE: 20160405
